FAERS Safety Report 14146570 (Version 1)
Quarter: 2017Q4

REPORT INFORMATION
  Report Type: Spontaneous
  Country: GR (occurrence: GR)
  Receive Date: 20171031
  Receipt Date: 20171031
  Transmission Date: 20180321
  Serious: Yes (Other)
  Sender: FDA-Public Use
  Company Number: GR-BRISTOL-MYERS SQUIBB COMPANY-BMS-2017-096394

PATIENT
  Age: 81 Year
  Sex: Male

DRUGS (1)
  1. NIVOLUMAB [Suspect]
     Active Substance: NIVOLUMAB
     Indication: METASTASES TO LIVER
     Route: 065

REACTIONS (3)
  - Rhabdomyolysis [Unknown]
  - Product use in unapproved indication [Unknown]
  - Mononeuropathy multiplex [Unknown]
